FAERS Safety Report 24660518 (Version 2)
Quarter: 2025Q1

REPORT INFORMATION
  Report Type: Spontaneous
  Country: DE (occurrence: DE)
  Receive Date: 20241125
  Receipt Date: 20250108
  Transmission Date: 20250409
  Serious: No
  Sender: UCB
  Company Number: DE-UCBSA-2024061650

PATIENT
  Sex: Female

DRUGS (1)
  1. NEUPRO [Suspect]
     Active Substance: ROTIGOTINE
     Indication: Product used for unknown indication
     Route: 062
     Dates: start: 2020

REACTIONS (1)
  - Product adhesion issue [Unknown]
